FAERS Safety Report 18314414 (Version 1)
Quarter: 2020Q3

REPORT INFORMATION
  Report Type: Spontaneous
  Country: US (occurrence: US)
  Receive Date: 20200925
  Receipt Date: 20200925
  Transmission Date: 20201103
  Serious: No
  Sender: FDA-Public Use
  Company Number: US-PFIZER INC-2020366940

PATIENT
  Age: 46 Year
  Sex: Male
  Weight: 90.72 kg

DRUGS (1)
  1. GEODON [Suspect]
     Active Substance: ZIPRASIDONE HYDROCHLORIDE\ZIPRASIDONE MESYLATE
     Dosage: 80 MG, 2X/DAY [80MG IN THE MORNING AND 80MG IN THE EVENING]
     Dates: start: 2012

REACTIONS (4)
  - Tremor [Unknown]
  - Dyskinesia [Unknown]
  - Somnolence [Unknown]
  - Product prescribing error [Unknown]

NARRATIVE: CASE EVENT DATE: 2012
